FAERS Safety Report 5581963-8 (Version None)
Quarter: 2008Q1

REPORT INFORMATION
  Report Type: 
  Country: None (occurrence: None)
  Receive Date: 20080104
  Receipt Date: 20071228
  Transmission Date: 20080703
  Serious: Yes (Hospitalization)
  Sender: FDA-Public Use
  Company Number: B0501180A

PATIENT
  Age: 76 Year
  Sex: Female
  Weight: 65 kg

DRUGS (9)
  1. ARIXTRA [Suspect]
     Indication: THROMBOSIS PROPHYLAXIS
     Dosage: 2.5MG PER DAY
     Route: 058
     Dates: start: 20071019, end: 20071028
  2. LOXOPROFEN [Concomitant]
     Indication: PAIN PROPHYLAXIS
     Route: 048
  3. MUCOSTA [Concomitant]
     Route: 048
  4. FLOMOX [Concomitant]
     Indication: INFECTION PROPHYLAXIS
     Route: 048
  5. UNKNOWN DRUG [Concomitant]
     Indication: INFECTION PROPHYLAXIS
  6. UNKNOWN DRUG [Concomitant]
     Route: 048
  7. MELBIN [Concomitant]
     Route: 048
  8. LIPITOR [Concomitant]
     Route: 048
  9. GLYBURIDE [Concomitant]
     Route: 048

REACTIONS (2)
  - MUSCLE DISORDER [None]
  - POSTOPERATIVE WOUND COMPLICATION [None]
